FAERS Safety Report 18967030 (Version 1)
Quarter: 2021Q1

REPORT INFORMATION
  Report Type: Report from Study
  Country: MX (occurrence: MX)
  Receive Date: 20210303
  Receipt Date: 20210303
  Transmission Date: 20210420
  Serious: Yes (Other)
  Sender: FDA-Public Use
  Company Number: MX-JNJFOC-20200210499

PATIENT
  Age: 59 Year
  Sex: Female
  Weight: 61 kg

DRUGS (1)
  1. REMICADE [Suspect]
     Active Substance: INFLIXIMAB
     Indication: RHEUMATOID ARTHRITIS
     Route: 042
     Dates: start: 20080314

REACTIONS (4)
  - Sjogren^s syndrome [Unknown]
  - Inappropriate schedule of product administration [Unknown]
  - COVID-19 [Unknown]
  - Cataract [Unknown]

NARRATIVE: CASE EVENT DATE: 202102
